FAERS Safety Report 9079106 (Version 1)
Quarter: 2013Q1

REPORT INFORMATION
  Report Type: Spontaneous
  Country: IT (occurrence: FR)
  Receive Date: 20130130
  Receipt Date: 20130130
  Transmission Date: 20140127
  Serious: Yes (Hospitalization)
  Sender: FDA-Public Use
  Company Number: FR-FRI-1000042286

PATIENT
  Age: 76 None
  Sex: Female

DRUGS (3)
  1. NEBIVOLOL [Suspect]
     Dosage: 3.75 MG
     Route: 048
  2. TEGRETOL [Suspect]
     Dosage: 900 MG
     Route: 048
  3. LIORESAL [Suspect]
     Dosage: 20 MG
     Route: 048

REACTIONS (2)
  - Hyponatraemia [Recovering/Resolving]
  - Presyncope [Unknown]
